FAERS Safety Report 4733605-9 (Version None)
Quarter: 2005Q3

REPORT INFORMATION
  Report Type: 
  Country: None (occurrence: None)
  Receive Date: 20050729
  Receipt Date: 20050615
  Transmission Date: 20060218
  Serious: No
  Sender: FDA-Public Use
  Company Number: COT_0105_2005

PATIENT
  Age: 63 Year
  Sex: Female
  Weight: 73.4827 kg

DRUGS (9)
  1. VENTAVIS [Suspect]
     Indication: PULMONARY HYPERTENSION
     Dosage: 5 MCG 6XD IH
     Route: 055
     Dates: start: 20050608
  2. REMODULIN [Concomitant]
  3. COUMADIN [Concomitant]
  4. LORAZEPAM [Concomitant]
  5. TOPROL-XL [Concomitant]
  6. LANOXIN [Concomitant]
  7. AMARYL [Concomitant]
  8. ULTRAM [Concomitant]
  9. OXYGEN [Concomitant]

REACTIONS (4)
  - BLOOD PRESSURE INCREASED [None]
  - DIZZINESS [None]
  - DYSPNOEA [None]
  - PAIN IN JAW [None]
